FAERS Safety Report 6004794-3 (Version None)
Quarter: 2008Q4

REPORT INFORMATION
  Report Type: 
  Country: None (occurrence: None)
  Receive Date: 20081215
  Receipt Date: 20081112
  Transmission Date: 20090506
  Serious: Yes (Other)
  Sender: FDA-Public Use
  Company Number: 08-611

PATIENT
  Age: 45 Year
  Sex: Female

DRUGS (7)
  1. ALEVE [Suspect]
     Indication: PAIN
     Dosage: 440 MG, DAILY, ORAL
     Route: 048
  2. ALEVE [Suspect]
     Indication: PAIN
     Dosage: ORAL
     Route: 048
     Dates: end: 20070101
  3. CAFFEINE [Concomitant]
  4. LYRICA [Concomitant]
  5. IRON [Concomitant]
  6. CALTRATE [Concomitant]
  7. TRAMADOL HCL [Concomitant]

REACTIONS (1)
  - RECTAL HAEMORRHAGE [None]
